FAERS Safety Report 5422190-4 (Version None)
Quarter: 2007Q3

REPORT INFORMATION
  Report Type: 
  Country: None (occurrence: None)
  Receive Date: 20070817
  Receipt Date: 20070511
  Transmission Date: 20080115
  Serious: Yes (Hospitalization)
  Sender: FDA-Public Use
  Company Number: 2007BI002760

PATIENT
  Age: 21 Year
  Sex: Female

DRUGS (1)
  1. AVONEX [Suspect]
     Indication: MULTIPLE SCLEROSIS
     Dosage: 30 UG; QW; IM
     Route: 030
     Dates: start: 20040317

REACTIONS (6)
  - CONFUSIONAL STATE [None]
  - CSF BACTERIA IDENTIFIED [None]
  - MENINGISM [None]
  - MENINGITIS [None]
  - OTITIS MEDIA [None]
  - STREPTOCOCCAL INFECTION [None]
